FAERS Safety Report 20606423 (Version 1)
Quarter: 2022Q1

REPORT INFORMATION
  Report Type: Spontaneous
  Country: US (occurrence: None)
  Receive Date: 20220316
  Receipt Date: 20220316
  Transmission Date: 20220423
  Serious: Yes (Hospitalization)
  Sender: FDA-Public Use
  Company Number: None

PATIENT
  Age: 66 Year
  Sex: Female

DRUGS (1)
  1. XELJANZ [Suspect]
     Active Substance: TOFACITINIB CITRATE
     Indication: Ankylosing spondylitis
     Dosage: FREQUENCY : TWICE A DAY;?
     Route: 048
     Dates: start: 20210721, end: 20220216

REACTIONS (3)
  - Myopathy [None]
  - Pulmonary thrombosis [None]
  - Therapy cessation [None]

NARRATIVE: CASE EVENT DATE: 20220221
